FAERS Safety Report 17813848 (Version 1)
Quarter: 2020Q3

REPORT INFORMATION
  Report Type: Report from Study
  Country: UA (occurrence: UA)
  Receive Date: 20200521
  Receipt Date: 20200521
  Transmission Date: 20201104
  Serious: Yes (Hospitalization, Other)
  Sender: FDA-Public Use
  Company Number: UA-CELGENEUS-UKR-20170707230

PATIENT
  Age: 36 Year
  Sex: Female

DRUGS (2)
  1. OZANIMOD. [Suspect]
     Active Substance: OZANIMOD
     Indication: RELAPSING-REMITTING MULTIPLE SCLEROSIS
     Dosage: 1 CAPSULE
     Route: 048
     Dates: start: 20160428, end: 20170720
  2. CISPLATIN. [Concomitant]
     Active Substance: CISPLATIN
     Indication: CHEMOTHERAPY
     Route: 065
     Dates: start: 20170911, end: 20171006

REACTIONS (1)
  - Cervix carcinoma [Recovered/Resolved]

NARRATIVE: CASE EVENT DATE: 20170720
